FAERS Safety Report 7754674-8 (Version None)
Quarter: 2011Q3

REPORT INFORMATION
  Report Type: 
  Country: None (occurrence: None)
  Receive Date: 20110915
  Receipt Date: 20110913
  Transmission Date: 20111222
  Serious: No
  Sender: FDA-Public Use
  Company Number: US-ALLERGAN-1111596US

PATIENT
  Age: 74 Year
  Sex: Female

DRUGS (4)
  1. ALLERGY MEDICATION [Concomitant]
     Indication: HYPERSENSITIVITY
     Dosage: UNK
     Route: 047
  2. LUMIGAN [Suspect]
     Indication: GLAUCOMA
     Dosage: 2 GTT, QHS
     Route: 047
  3. LUMIGAN [Suspect]
     Dosage: 2 GTT, QHS
     Route: 047
  4. LUMIGAN [Suspect]
     Dosage: 2 GTT, QHS
     Route: 047

REACTIONS (7)
  - DRY SKIN [None]
  - HAIR TEXTURE ABNORMAL [None]
  - EYE DISORDER [None]
  - GROWTH OF EYELASHES [None]
  - ERYTHEMA OF EYELID [None]
  - FOREIGN BODY SENSATION IN EYES [None]
  - EYELASH DISCOLOURATION [None]
